FAERS Safety Report 7673689-1 (Version None)
Quarter: 2011Q3

REPORT INFORMATION
  Report Type: 
  Country: None (occurrence: None)
  Receive Date: 20110810
  Receipt Date: 20110727
  Transmission Date: 20111222
  Serious: Yes (Hospitalization, Other)
  Sender: FDA-Public Use
  Company Number: US-US-EMD SERONO, INC.-7073906

PATIENT
  Sex: Female

DRUGS (1)
  1. REBIF [Suspect]
     Indication: PRODUCT USED FOR UNKNOWN INDICATION
     Dates: start: 20030101, end: 20100301

REACTIONS (5)
  - HIATUS HERNIA [None]
  - OSTEOARTHRITIS [None]
  - THYROID NEOPLASM [None]
  - PROCEDURAL COMPLICATION [None]
  - SPINAL COLUMN STENOSIS [None]
